FAERS Safety Report 15340394 (Version 1)
Quarter: 2018Q3

REPORT INFORMATION
  Report Type: Spontaneous
  Country: US (occurrence: US)
  Receive Date: 20180831
  Receipt Date: 20180831
  Transmission Date: 20181010
  Serious: Yes (Hospitalization)
  Sender: FDA-Public Use
  Company Number: PHHY2018US087340

PATIENT
  Age: 13 Year
  Sex: Female
  Weight: 43.2 kg

DRUGS (5)
  1. VANCOMYCIN [Concomitant]
     Active Substance: VANCOMYCIN
     Indication: NEUTROPENIA
     Dosage: 15 MG/KG, Q8H
     Route: 042
  2. LEVETIRACETAM. [Concomitant]
     Active Substance: LEVETIRACETAM
     Indication: PROPHYLAXIS
     Dosage: 20 MG/KG, Q12H
     Route: 042
  3. CEFEPIME [Concomitant]
     Active Substance: CEFEPIME HYDROCHLORIDE
     Indication: NEUTROPENIA
     Dosage: 200 MG, Q8H
     Route: 042
  4. KYMRIAH [Suspect]
     Active Substance: TISAGENLECLEUCEL
     Indication: ACUTE LYMPHOCYTIC LEUKAEMIA
     Dosage: UNK, ONCE/SINGLE
     Route: 042
     Dates: start: 20180619
  5. PIPERACILLIN [Concomitant]
     Active Substance: PIPERACILLIN
     Indication: NEUTROPENIA
     Dosage: 3000 MG, Q6H
     Route: 042

REACTIONS (17)
  - Chills [Unknown]
  - Stomatitis [Unknown]
  - Pyrexia [Unknown]
  - Histiocytosis haematophagic [Unknown]
  - Tachypnoea [Unknown]
  - Hypotension [Unknown]
  - Hypoxia [Unknown]
  - Liver function test increased [Recovered/Resolved]
  - Irritability [Unknown]
  - Speech disorder [Unknown]
  - Moaning [Unknown]
  - Pancreatitis [Unknown]
  - Tachycardia [Unknown]
  - Hepatic function abnormal [Unknown]
  - Encephalopathy [Recovered/Resolved]
  - Neurotoxicity [Recovered/Resolved]
  - Cytokine release syndrome [Recovered/Resolved]

NARRATIVE: CASE EVENT DATE: 20180619
